FAERS Safety Report 4584770-8 (Version None)
Quarter: 2005Q1

REPORT INFORMATION
  Report Type: 
  Country: None (occurrence: None)
  Receive Date: 20050217
  Receipt Date: 20050204
  Transmission Date: 20050727
  Serious: Yes (Hospitalization)
  Sender: FDA-Public Use
  Company Number: BE-JNJFOC-20050201881

PATIENT
  Age: 56 Year
  Sex: Male

DRUGS (8)
  1. REMICADE [Suspect]
     Indication: ANKYLOSING SPONDYLITIS
     Route: 042
  2. ISOTEN [Concomitant]
     Indication: HYPERTENSION
     Route: 049
  3. CATAPRES [Concomitant]
     Indication: HYPERTENSION
  4. CO-APROVAL [Concomitant]
     Indication: HYPERTENSION
  5. MOXON [Concomitant]
     Indication: HYPERTENSION
  6. PLAVIX [Concomitant]
  7. GLUCOPHAGE [Concomitant]
  8. GLICLAZIDE [Concomitant]

REACTIONS (3)
  - BALANITIS [None]
  - CARDIAC FAILURE CONGESTIVE [None]
  - PARESIS [None]
